FAERS Safety Report 4275125-4 (Version None)
Quarter: 2004Q1

REPORT INFORMATION
  Report Type: 
  Country: None (occurrence: None)
  Receive Date: 20040116
  Receipt Date: 20031229
  Transmission Date: 20041129
  Serious: Yes (Hospitalization)
  Sender: FDA-Public Use
  Company Number: RENA-10606

PATIENT
  Age: 46 Year
  Sex: Male
  Weight: 61.8 kg

DRUGS (6)
  1. RENAGEL [Suspect]
     Indication: HYPERPHOSPHATAEMIA
     Dosage: 4.5 G QD; PO
     Route: 048
     Dates: start: 20030626, end: 20030922
  2. ALLOPURINOL [Concomitant]
  3. SODIUM GUALENATE (LEVOGLUTAMIDE) [Concomitant]
  4. EBASTINE [Concomitant]
  5. SENNOSIDE A+B [Concomitant]
  6. FAMOTIDINE [Concomitant]

REACTIONS (4)
  - DIALYSIS [None]
  - DUODENAL ULCER PERFORATION [None]
  - PERITONITIS [None]
  - TREATMENT NONCOMPLIANCE [None]
